FAERS Safety Report 12801863 (Version 2)
Quarter: 2016Q4

REPORT INFORMATION
  Report Type: Spontaneous
  Country: JP (occurrence: JP)
  Receive Date: 20161003
  Receipt Date: 20161116
  Transmission Date: 20170207
  Serious: Yes (Hospitalization, Other)
  Sender: FDA-Public Use
  Company Number: PHJP2016JP027697

PATIENT
  Age: 32 Year
  Sex: Male

DRUGS (2)
  1. PAZOPANIB [Suspect]
     Active Substance: PAZOPANIB
     Indication: DESMOPLASTIC SMALL ROUND CELL TUMOUR
     Dosage: 800 MG, QD
     Route: 065
  2. PAZOPANIB [Suspect]
     Active Substance: PAZOPANIB
     Dosage: 400 MG, QD
     Route: 065

REACTIONS (4)
  - Hypothyroidism [Recovering/Resolving]
  - Thrombocytopenia [Recovering/Resolving]
  - Therapeutic response decreased [Unknown]
  - Oedema due to cardiac disease [Recovering/Resolving]
